FAERS Safety Report 25363273 (Version 3)
Quarter: 2025Q2

REPORT INFORMATION
  Report Type: Spontaneous
  Country: JP (occurrence: JP)
  Receive Date: 20250527
  Receipt Date: 20250610
  Transmission Date: 20250716
  Serious: Yes (Death, Other)
  Sender: ALEXION PHARMACEUTICALS
  Company Number: JP-ASTRAZENECA-250051283_013020_P_1

PATIENT
  Age: 70 Year
  Weight: 82 kg

DRUGS (10)
  1. OSIMERTINIB [Suspect]
     Active Substance: OSIMERTINIB
     Indication: Non-small cell lung cancer
     Dosage: 80 MILLIGRAM, QD
  2. OSIMERTINIB [Suspect]
     Active Substance: OSIMERTINIB
     Dosage: 80 MILLIGRAM, QD
  3. AMLODIPINE [Concomitant]
     Active Substance: AMLODIPINE BESYLATE
     Indication: Hypertension
  4. AMLODIPINE [Concomitant]
     Active Substance: AMLODIPINE BESYLATE
     Dosage: 5 MILLIGRAM, QD
  5. NAFTOPIDIL [Concomitant]
     Active Substance: NAFTOPIDIL
     Indication: Benign prostatic hyperplasia
  6. NAFTOPIDIL [Concomitant]
     Active Substance: NAFTOPIDIL
     Dosage: 50 MILLIGRAM, QD
  7. DUTASTERIDE [Concomitant]
     Active Substance: DUTASTERIDE
     Indication: Benign prostatic hyperplasia
  8. DUTASTERIDE [Concomitant]
     Active Substance: DUTASTERIDE
     Dosage: 0.5 MILLIGRAM, QD
  9. HERBALS [Concomitant]
     Active Substance: HERBALS
     Indication: Benign prostatic hyperplasia
  10. HERBALS [Concomitant]
     Active Substance: HERBALS
     Dosage: 63 MILLIGRAM, BID

REACTIONS (2)
  - Interstitial lung disease [Unknown]
  - Myocardial ischaemia [Fatal]
